FAERS Safety Report 14949284 (Version 1)
Quarter: 2018Q2

REPORT INFORMATION
  Report Type: Report from Study
  Country: IL (occurrence: IL)
  Receive Date: 20180529
  Receipt Date: 20180529
  Transmission Date: 20180711
  Serious: Yes (Death)
  Sender: FDA-Public Use
  Company Number: IL-SEATTLE GENETICS-2018SGN01219

PATIENT
  Age: 75 Year
  Sex: Female

DRUGS (1)
  1. BRENTUXIMAB VEDOTIN-MPI [Suspect]
     Active Substance: BRENTUXIMAB VEDOTIN
     Indication: HODGKIN^S DISEASE
     Dosage: 1.2 MG/KG, Q21D
     Route: 042

REACTIONS (3)
  - Neuropathy peripheral [Unknown]
  - Death [Fatal]
  - Drug ineffective [Unknown]
